FAERS Safety Report 12430336 (Version 1)
Quarter: 2016Q2

REPORT INFORMATION
  Report Type: Spontaneous
  Country: AR (occurrence: AR)
  Receive Date: 20160602
  Receipt Date: 20160602
  Transmission Date: 20160815
  Serious: Yes (Other)
  Sender: FDA-Public Use
  Company Number: AR-R-PHARM US LLC-2016RPM00023

PATIENT
  Age: 53 Year
  Sex: Female

DRUGS (4)
  1. IXEMPRA [Suspect]
     Active Substance: IXABEPILONE
     Dosage: 45 MG, ONCE
     Route: 042
     Dates: start: 20160407, end: 20160407
  2. IXEMPRA [Suspect]
     Active Substance: IXABEPILONE
     Dosage: 45 MG, ONCE
     Route: 042
     Dates: start: 20160504, end: 20160504
  3. IXEMPRA [Suspect]
     Active Substance: IXABEPILONE
     Dosage: 45 MG, ONCE
     Route: 042
     Dates: start: 20160212, end: 20160212
  4. IXEMPRA [Suspect]
     Active Substance: IXABEPILONE
     Dosage: 45 MG, ONCE
     Route: 042
     Dates: start: 20151113, end: 20151113

REACTIONS (5)
  - Peripheral swelling [Unknown]
  - General physical health deterioration [Unknown]
  - Bedridden [Unknown]
  - Skin disorder [Unknown]
  - Vomiting [Unknown]

NARRATIVE: CASE EVENT DATE: 201604
